FAERS Safety Report 5369365-0 (Version None)
Quarter: 2007Q2

REPORT INFORMATION
  Report Type: 
  Country: None (occurrence: None)
  Receive Date: 20070625
  Receipt Date: 20070323
  Transmission Date: 20071010
  Serious: No
  Sender: FDA-Public Use
  Company Number: US-ASTRAZENECA-2007UW06007

PATIENT
  Age: 73 Year
  Sex: Female
  Weight: 59 kg

DRUGS (8)
  1. CRESTOR [Suspect]
     Indication: BLOOD CHOLESTEROL INCREASED
     Route: 048
     Dates: start: 20070301, end: 20070301
  2. ANTIBIOTICS [Concomitant]
     Dates: start: 20070301
  3. SYNTHROID [Concomitant]
  4. LISINOPRIL [Concomitant]
  5. OMEPRAZOLE [Concomitant]
  6. CLARITIN [Concomitant]
  7. ASCORBIC ACID [Concomitant]
  8. CENTRUM SILVER [Concomitant]

REACTIONS (2)
  - INJURY [None]
  - RASH [None]
